FAERS Safety Report 19560721 (Version 1)
Quarter: 2021Q3

REPORT INFORMATION
  Report Type: Spontaneous
  Country: US (occurrence: US)
  Receive Date: 20210715
  Receipt Date: 20210715
  Transmission Date: 20211014
  Serious: Yes (Hospitalization)
  Sender: FDA-Public Use
  Company Number: None

PATIENT
  Age: 47 Year
  Sex: Female

DRUGS (6)
  1. VITAMIN C [Suspect]
     Active Substance: ASCORBIC ACID
  2. FISH OIL [Suspect]
     Active Substance: FISH OIL
  3. VITAMIN B12 [Suspect]
     Active Substance: CYANOCOBALAMIN
  4. DIMETHYL FUMARATE 240MG CAP [Suspect]
     Active Substance: DIMETHYL FUMARATE
     Indication: MULTIPLE SCLEROSIS
     Dosage: ?          OTHER DOSE:1 CAP;?
     Route: 048
     Dates: start: 20201009
  5. MULTIVITAMIN [Suspect]
     Active Substance: VITAMINS
  6. VITAMIN D [Suspect]
     Active Substance: VITAMIN D NOS

REACTIONS (2)
  - Mobility decreased [None]
  - Multiple sclerosis relapse [None]

NARRATIVE: CASE EVENT DATE: 20210601
